FAERS Safety Report 25348459 (Version 1)
Quarter: 2025Q2

REPORT INFORMATION
  Report Type: Spontaneous
  Country: US (occurrence: None)
  Receive Date: 20250522
  Receipt Date: 20250522
  Transmission Date: 20250716
  Serious: Yes (unspecified)
  Sender: FDA-CTU
  Company Number: None

PATIENT
  Sex: Female
  Weight: 63 kg

DRUGS (1)
  1. ALBUTEROL SULFATE\FLUTICASONE PROPIONATE [Suspect]
     Active Substance: ALBUTEROL SULFATE\FLUTICASONE PROPIONATE

REACTIONS (1)
  - Drug ineffective [None]
